FAERS Safety Report 5467581-0 (Version None)
Quarter: 2007Q3

REPORT INFORMATION
  Report Type: 
  Country: None (occurrence: None)
  Receive Date: 20070921
  Receipt Date: 20061018
  Transmission Date: 20080115
  Serious: Yes (Other)
  Sender: FDA-Public Use
  Company Number: 2006VX002045

PATIENT
  Age: 58 Year
  Sex: Male

DRUGS (2)
  1. INTERFERON ALFACON-1 [Suspect]
     Indication: HEPATITIS C
     Dosage: 15 UG; QD; SC
     Route: 058
     Dates: start: 20060519, end: 20061018
  2. RIBAVIRIN [Concomitant]

REACTIONS (1)
  - FACIAL PALSY [None]
